FAERS Safety Report 5062222-9 (Version None)
Quarter: 2006Q3

REPORT INFORMATION
  Report Type: 
  Country: None (occurrence: None)
  Receive Date: 20060726
  Receipt Date: 20060717
  Transmission Date: 20061208
  Serious: Yes (Other)
  Sender: FDA-Public Use
  Company Number: US-JNJFOC-20060500965

PATIENT
  Sex: Female
  Weight: 98.88 kg

DRUGS (4)
  1. REMICADE [Suspect]
     Route: 042
  2. REMICADE [Suspect]
     Indication: RHEUMATOID ARTHRITIS
     Route: 042
  3. MOTRIN [Concomitant]
     Indication: RHEUMATOID ARTHRITIS
  4. UNSPECIFIED EYE DROPS [Concomitant]
     Indication: GLAUCOMA

REACTIONS (9)
  - BACK PAIN [None]
  - CHILLS [None]
  - HEADACHE [None]
  - HYPERSENSITIVITY [None]
  - PAIN [None]
  - PAIN IN EXTREMITY [None]
  - PYREXIA [None]
  - SPINAL FUSION SURGERY [None]
  - WHEEZING [None]
